FAERS Safety Report 12870767 (Version 1)
Quarter: 2016Q4

REPORT INFORMATION
  Report Type: Spontaneous
  Country: GB (occurrence: GB)
  Receive Date: 20161021
  Receipt Date: 20161021
  Transmission Date: 20170207
  Serious: Yes (Other)
  Sender: FDA-Public Use
  Company Number: GB-BAYER-2016-200620

PATIENT
  Age: 32 Year
  Sex: Female
  Weight: 65.69 kg

DRUGS (1)
  1. MIRENA [Suspect]
     Active Substance: LEVONORGESTREL
     Indication: CONTRACEPTION
     Dosage: 20 MCG/24HR, CONT
     Route: 015
     Dates: start: 20150121, end: 20160717

REACTIONS (10)
  - Fatigue [Recovering/Resolving]
  - Irritable bowel syndrome [Recovering/Resolving]
  - Eosinophil count increased [Recovering/Resolving]
  - Dizziness [Recovering/Resolving]
  - Confusional state [Recovering/Resolving]
  - Alopecia [Recovering/Resolving]
  - Memory impairment [Recovering/Resolving]
  - Abnormal weight gain [Recovering/Resolving]
  - Hypotonia [Recovering/Resolving]
  - Myalgia [Recovering/Resolving]

NARRATIVE: CASE EVENT DATE: 20150201
